FAERS Safety Report 8947010 (Version 2)
Quarter: 2013Q1

REPORT INFORMATION
  Report Type: Spontaneous
  Country: US (occurrence: US)
  Receive Date: 20121205
  Receipt Date: 20130109
  Transmission Date: 20140127
  Serious: No
  Sender: FDA-Public Use
  Company Number: US-BAYER-2012-125313

PATIENT
  Age: 28 Year
  Sex: Female
  Weight: 112.2 kg

DRUGS (9)
  1. MIRENA [Suspect]
     Indication: CONTRACEPTION
     Dosage: 20 MCG/24HR, CONT
     Route: 015
     Dates: start: 201109, end: 20121109
  2. EPIPEN 2-PAK [Concomitant]
     Indication: ANAPHYLACTIC REACTION
     Route: 030
  3. CALTRATE PLUS [CALCIUM CARBONATE,COLECALCIFEROL] [Concomitant]
     Dosage: 1 DF, BID
     Route: 048
  4. SEROQUEL [Concomitant]
     Dosage: 1 DF, QPM
     Route: 048
  5. WELLBUTRIN [Concomitant]
     Dosage: 1 UNK, QD
  6. SYNTHROID [Concomitant]
     Dosage: 1 UNK, QAM
     Route: 048
  7. FLUTICASONE PROPIONATE [Concomitant]
     Dosage: 2 SPRAYS DAILY
  8. FAMOTIDINE [Concomitant]
     Dosage: 20 MG, QD
  9. WOMEN^S MULTI [Concomitant]
     Dosage: 1 DF, QD
     Route: 048

REACTIONS (5)
  - Feeling abnormal [Not Recovered/Not Resolved]
  - Nausea [Not Recovered/Not Resolved]
  - Vomiting [Not Recovered/Not Resolved]
  - Abdominal pain upper [Not Recovered/Not Resolved]
  - Abdominal pain lower [None]
